FAERS Safety Report 4504338-9 (Version None)
Quarter: 2004Q4

REPORT INFORMATION
  Report Type: 
  Country: None (occurrence: None)
  Receive Date: 20041115
  Receipt Date: 20041102
  Transmission Date: 20050328
  Serious: Yes (Other)
  Sender: FDA-Public Use
  Company Number: 2004088902

PATIENT
  Sex: Male
  Weight: 83.9154 kg

DRUGS (10)
  1. LIPITOR [Suspect]
     Indication: BLOOD CHOLESTEROL INCREASED
     Dosage: 20 MG (20 MG, 1 IN 1 D), ORAL
     Route: 048
  2. MEXILETINE HCL [Suspect]
     Indication: CARDIOMYOPATHY
     Dosage: ORAL
     Route: 048
     Dates: start: 19980101, end: 20030201
  3. CITRUS PARADISI FRUIT JUICE [Concomitant]
  4. GLIMEPIRIDE [Concomitant]
  5. FUROSEMIDE [Concomitant]
  6. LISINOPRIL [Concomitant]
  7. SPIRONOLACTONE [Concomitant]
  8. WARFARIN SODIUM [Concomitant]
  9. CENTRUM SILVER (ASCORBIC ACID, CALCIUM, MINERAL NOS, RETINOL, TOCOPHER [Concomitant]
  10. DIGOXIN [Concomitant]

REACTIONS (10)
  - ADVERSE EVENT [None]
  - ARTHRALGIA [None]
  - HYPOAESTHESIA [None]
  - IMPLANTABLE DEFIBRILLATOR INSERTION [None]
  - NERVE INJURY [None]
  - OEDEMA PERIPHERAL [None]
  - PAIN [None]
  - PAIN IN EXTREMITY [None]
  - SKIN IRRITATION [None]
  - WOUND SECRETION [None]
